FAERS Safety Report 9370424 (Version 1)
Quarter: 2013Q2

REPORT INFORMATION
  Report Type: Spontaneous
  Country: US (occurrence: US)
  Receive Date: 20130626
  Receipt Date: 20130626
  Transmission Date: 20140414
  Serious: Yes (Other)
  Sender: FDA-Public Use
  Company Number: US-PFIZER INC-2013187188

PATIENT
  Age: 42 Year
  Sex: Female

DRUGS (2)
  1. XELJANZ [Suspect]
     Indication: RHEUMATOID ARTHRITIS
     Dosage: 5 MG, 2X/DAY
     Dates: start: 20130515
  2. XELJANZ [Suspect]
     Dosage: 5MG DAILY

REACTIONS (4)
  - Pharyngitis streptococcal [Unknown]
  - Urinary tract infection [Unknown]
  - Herpes virus infection [Unknown]
  - Vaginal infection [Unknown]
